FAERS Safety Report 22319920 (Version 2)
Quarter: 2023Q2

REPORT INFORMATION
  Report Type: Spontaneous
  Country: JP (occurrence: JP)
  Receive Date: 20230515
  Receipt Date: 20230530
  Transmission Date: 20230721
  Serious: Yes (Life-Threatening)
  Sender: FDA-Public Use
  Company Number: JP-ELI_LILLY_AND_COMPANY-JP202305006095

PATIENT
  Age: 43 Year
  Sex: Female

DRUGS (1)
  1. ZYPREXA ZYDIS [Suspect]
     Active Substance: OLANZAPINE
     Indication: Product used for unknown indication
     Dosage: 10 MG
     Route: 048

REACTIONS (1)
  - Acidosis [Unknown]
